FAERS Safety Report 21721475 (Version 5)
Quarter: 2024Q1

REPORT INFORMATION
  Report Type: Other
  Country: DE (occurrence: None)
  Receive Date: 20221213
  Receipt Date: 20240117
  Transmission Date: 20240410
  Serious: Yes (Other)
  Sender: FDA-Public Use
  Company Number: DE-ROCHE-2522985

PATIENT
  Age: 43 Year
  Sex: Female

DRUGS (17)
  1. OCREVUS [Suspect]
     Active Substance: OCRELIZUMAB
     Indication: Relapsing-remitting multiple sclerosis
     Dosage: 600 MG FOR 188 DAYS.
     Route: 042
     Dates: start: 20191118
  2. OCREVUS [Suspect]
     Active Substance: OCRELIZUMAB
     Route: 042
     Dates: start: 20191202
  3. OCREVUS [Suspect]
     Active Substance: OCRELIZUMAB
     Route: 042
     Dates: start: 20200518
  4. OCREVUS [Suspect]
     Active Substance: OCRELIZUMAB
     Route: 042
     Dates: start: 20201123
  5. OCREVUS [Suspect]
     Active Substance: OCRELIZUMAB
     Dosage: 189 DAYS, 3RD MAINTENANCE DOSE
     Route: 042
     Dates: start: 20210531
  6. COMIRNATY (TOZINAMERAN) [Suspect]
     Active Substance: TOZINAMERAN
     Indication: COVID-19 prophylaxis
     Route: 065
     Dates: start: 20210218
  7. COMIRNATY (TOZINAMERAN) [Suspect]
     Active Substance: TOZINAMERAN
     Route: 065
     Dates: start: 20210311
  8. COMIRNATY (TOZINAMERAN) [Suspect]
     Active Substance: TOZINAMERAN
     Dosage: 3RD VAVCCINE.
     Route: 065
     Dates: start: 20211026
  9. PREDNISOLONE [Suspect]
     Active Substance: PREDNISOLONE
     Indication: Premedication
     Route: 065
     Dates: start: 20210531
  10. SPASMEX (GERMANY) [Concomitant]
  11. LEVOTHYROXINE [Concomitant]
     Active Substance: LEVOTHYROXINE
  12. FOLIC ACID [Concomitant]
     Active Substance: FOLIC ACID
     Indication: Endometriosis
  13. CORTISONE [Concomitant]
     Active Substance: CORTISONE
     Route: 042
  14. MIRABEGRON [Concomitant]
     Active Substance: MIRABEGRON
  15. DESOGESTREL [Concomitant]
     Active Substance: DESOGESTREL
     Indication: Endometriosis
     Route: 048
  16. COSENTYX [Concomitant]
     Active Substance: SECUKINUMAB
  17. ERGOCALCIFEROL [Concomitant]
     Active Substance: ERGOCALCIFEROL

REACTIONS (24)
  - Type 2 diabetes mellitus [Not Recovered/Not Resolved]
  - Pneumonia [Recovered/Resolved]
  - Bronchitis [Recovered/Resolved]
  - Palpitations [Recovered/Resolved]
  - Headache [Recovered/Resolved]
  - Hypersensitivity [Recovered/Resolved]
  - Fatigue [Recovered/Resolved]
  - Visual impairment [Recovered/Resolved]
  - Feeling cold [Recovered/Resolved]
  - Feeling hot [Recovered/Resolved]
  - Listless [Recovered/Resolved]
  - Erythema [Recovered/Resolved]
  - SARS-CoV-2 antibody test negative [Not Recovered/Not Resolved]
  - Vasculitis [Recovered/Resolved]
  - Cartilage injury [Recovered/Resolved]
  - C-reactive protein increased [Unknown]
  - White blood cell count decreased [Unknown]
  - COVID-19 [Recovered/Resolved]
  - Myositis [Recovered/Resolved]
  - Herpes zoster [Recovered/Resolved]
  - Infection susceptibility increased [Not Recovered/Not Resolved]
  - Impaired healing [Recovered/Resolved]
  - Tinea pedis [Recovered/Resolved]
  - Blood immunoglobulin G decreased [Recovered/Resolved]

NARRATIVE: CASE EVENT DATE: 20191118
